FAERS Safety Report 6902949-4 (Version None)
Quarter: 2010Q3

REPORT INFORMATION
  Report Type: 
  Country: None (occurrence: None)
  Receive Date: 20100803
  Receipt Date: 20080903
  Transmission Date: 20110219
  Serious: No
  Sender: FDA-Public Use
  Company Number: US-PFIZER INC-2008052476

PATIENT
  Sex: Female
  Weight: 84.5 kg

DRUGS (5)
  1. LYRICA [Suspect]
     Dates: start: 20080201
  2. ANTIHYPERTENSIVES [Concomitant]
  3. CHOLESTEROL- AND TRIGLYCERIDE REDUCERS [Concomitant]
  4. ALLERGY MEDICATION [Concomitant]
  5. DRUG, UNSPECIFIED [Concomitant]
     Indication: OSTEOPOROSIS

REACTIONS (2)
  - DRUG INEFFECTIVE [None]
  - WEIGHT LOSS POOR [None]
